FAERS Safety Report 7694449-1 (Version None)
Quarter: 2011Q3

REPORT INFORMATION
  Report Type: 
  Country: None (occurrence: None)
  Receive Date: 20110819
  Receipt Date: 20110804
  Transmission Date: 20111222
  Serious: Yes (Hospitalization)
  Sender: FDA-Public Use
  Company Number: PHHY2011US15531

PATIENT
  Age: 19 Year
  Sex: Female

DRUGS (2)
  1. TOBI [Suspect]
     Indication: CYSTIC FIBROSIS
     Dosage: 300 MG, BID FOR 28 DAYS, THEN 28 DAYS OFF, THEN REPEAT
     Dates: start: 20091009
  2. PULMOZYME [Concomitant]

REACTIONS (2)
  - DIABETIC COMPLICATION [None]
  - UPPER RESPIRATORY TRACT INFECTION [None]
